FAERS Safety Report 10052080 (Version 11)
Quarter: 2016Q4

REPORT INFORMATION
  Report Type: Report from Study
  Country: DE (occurrence: DE)
  Receive Date: 20140402
  Receipt Date: 20161125
  Transmission Date: 20170206
  Serious: Yes (Hospitalization)
  Sender: FDA-Public Use
  Company Number: DE-ROCHE-1369629

PATIENT
  Age: 32 Year
  Sex: Female
  Weight: 62 kg

DRUGS (23)
  1. BEVACIZUMAB [Suspect]
     Active Substance: BEVACIZUMAB
     Route: 042
     Dates: start: 20150210
  2. PACLITAXEL. [Suspect]
     Active Substance: PACLITAXEL
     Route: 042
     Dates: start: 20131213
  3. CARBOPLATIN. [Suspect]
     Active Substance: CARBOPLATIN
     Route: 042
     Dates: start: 20140217
  4. KONAKION [Concomitant]
     Active Substance: PHYTONADIONE
     Route: 048
     Dates: start: 201404, end: 201404
  5. METOCLOPRAMIDE. [Concomitant]
     Active Substance: METOCLOPRAMIDE
     Indication: NAUSEA
     Dosage: 10 TROPFEN
     Route: 048
     Dates: start: 20131111, end: 201403
  6. ACC LONG [Concomitant]
     Indication: COUGH
     Route: 048
     Dates: start: 201404, end: 201404
  7. BEVACIZUMAB [Suspect]
     Active Substance: BEVACIZUMAB
     Indication: OVARIAN CANCER
     Dosage: DATE OF LAST DOSE TAKEN PROIER TO ONSET OF SAE: 10/MAR/2014
     Route: 042
     Dates: start: 20131111
  8. PACLITAXEL. [Suspect]
     Active Substance: PACLITAXEL
     Indication: OVARIAN CANCER
     Dosage: DATE OF LAST DOSE TAKEN PRIOR TO ONSET OF SAE: 10/MAR/2014
     Route: 042
     Dates: start: 20131111
  9. LOPEDIUM [Concomitant]
     Active Substance: LOPERAMIDE
     Route: 048
     Dates: start: 2014, end: 2014
  10. PACLITAXEL. [Suspect]
     Active Substance: PACLITAXEL
     Route: 042
     Dates: start: 20140310
  11. VENLAFAXIN [Concomitant]
     Active Substance: VENLAFAXINE HYDROCHLORIDE
     Indication: DEPRESSION
     Route: 048
     Dates: start: 20150211
  12. BEVACIZUMAB [Suspect]
     Active Substance: BEVACIZUMAB
     Route: 042
     Dates: start: 20140626
  13. CARBOPLATIN. [Suspect]
     Active Substance: CARBOPLATIN
     Indication: OVARIAN CANCER
     Dosage: AUC 5?DATE OF LAST DOSE TAKEN PRIOR TO ONSET OF SAE: 10/MAR/2014
     Route: 042
     Dates: start: 20131111
  14. CARBOPLATIN. [Suspect]
     Active Substance: CARBOPLATIN
     Route: 042
     Dates: start: 20140106
  15. PACLITAXEL. [Suspect]
     Active Substance: PACLITAXEL
     Route: 042
     Dates: start: 20140127
  16. CARBOPLATIN. [Suspect]
     Active Substance: CARBOPLATIN
     Route: 042
     Dates: start: 20131213
  17. CARBOPLATIN. [Suspect]
     Active Substance: CARBOPLATIN
     Route: 042
     Dates: start: 20140127
  18. L-THYROXINE [Concomitant]
     Active Substance: LEVOTHYROXINE
     Indication: HYPOTHYROIDISM
     Route: 048
     Dates: start: 2013
  19. PANTOPRAZOLE [Concomitant]
     Active Substance: PANTOPRAZOLE SODIUM
     Route: 048
     Dates: start: 20140106
  20. METOCLOPRAMIDE. [Concomitant]
     Active Substance: METOCLOPRAMIDE
     Route: 065
  21. PACLITAXEL. [Suspect]
     Active Substance: PACLITAXEL
     Route: 042
     Dates: start: 20140106
  22. PACLITAXEL. [Suspect]
     Active Substance: PACLITAXEL
     Route: 042
     Dates: start: 20140217
  23. CARBOPLATIN. [Suspect]
     Active Substance: CARBOPLATIN
     Route: 042
     Dates: start: 20140310

REACTIONS (9)
  - Urinary tract obstruction [Not Recovered/Not Resolved]
  - Seroma [Recovered/Resolved]
  - Impaired healing [Recovered/Resolved]
  - Pyrexia [Recovered/Resolved]
  - Lymphocele [Not Recovered/Not Resolved]
  - Ureteric stenosis [Recovered/Resolved]
  - General physical health deterioration [Unknown]
  - Lymphocele [Recovered/Resolved]
  - Hydronephrosis [Recovered/Resolved]

NARRATIVE: CASE EVENT DATE: 20140218
